FAERS Safety Report 20491619 (Version 2)
Quarter: 2022Q1

REPORT INFORMATION
  Report Type: Spontaneous
  Country: US (occurrence: US)
  Receive Date: 20220218
  Receipt Date: 20220218
  Transmission Date: 20220423
  Serious: Yes (Death)
  Sender: FDA-Public Use
  Company Number: US-CELGENE-USA-20220205462

PATIENT
  Age: 81 Year
  Sex: Female
  Weight: 58.112 kg

DRUGS (1)
  1. REVLIMID [Suspect]
     Active Substance: LENALIDOMIDE
     Indication: Plasma cell myeloma
     Dosage: 5 MILLIGRAM
     Route: 048
     Dates: start: 20220122

REACTIONS (2)
  - Plasma cell myeloma [Fatal]
  - Renal failure [Fatal]

NARRATIVE: CASE EVENT DATE: 20220210
